FAERS Safety Report 9984272 (Version 1)
Quarter: 2014Q1

REPORT INFORMATION
  Report Type: Spontaneous
  Country: US (occurrence: US)
  Receive Date: 20140307
  Receipt Date: 20140307
  Transmission Date: 20141002
  Serious: Yes (Other)
  Sender: FDA-Public Use
  Company Number: US-PFIZER INC-2014065958

PATIENT
  Age: 62 Year
  Sex: Female
  Weight: 70.3 kg

DRUGS (2)
  1. XELJANZ [Suspect]
     Indication: RHEUMATOID ARTHRITIS
     Dosage: 5 MG, 2X/DAY
     Route: 048
     Dates: start: 2014, end: 20140228
  2. MEDROL [Concomitant]
     Dosage: UNK

REACTIONS (1)
  - Diarrhoea haemorrhagic [Unknown]
